FAERS Safety Report 18069471 (Version 3)
Quarter: 2020Q4

REPORT INFORMATION
  Report Type: Spontaneous
  Country: JP (occurrence: JP)
  Receive Date: 20200726
  Receipt Date: 20201022
  Transmission Date: 20210113
  Serious: Yes (Death, Other)
  Sender: FDA-Public Use
  Company Number: JP-AMGEN-JPNSP2020118988

PATIENT
  Age: 69 Year
  Sex: Male
  Weight: 80 kg

DRUGS (8)
  1. OXALIPLATIN. [Concomitant]
     Active Substance: OXALIPLATIN
     Indication: METASTASES TO LYMPH NODES
     Dosage: UNK
     Route: 065
     Dates: start: 20200423
  2. CAPECITABINE. [Concomitant]
     Active Substance: CAPECITABINE
     Indication: COLON CANCER
     Dosage: 1800 MILLIGRAM, BID
     Route: 048
     Dates: start: 20200305, end: 20200402
  3. OXALIPLATIN. [Concomitant]
     Active Substance: OXALIPLATIN
     Indication: COLON CANCER
     Dosage: UNK
     Route: 065
     Dates: start: 20200305
  4. RABEPRAZOLE SODIUM. [Concomitant]
     Active Substance: RABEPRAZOLE SODIUM
     Indication: PRODUCT USED FOR UNKNOWN INDICATION
     Dosage: 10 MILLIGRAM, QD
     Route: 048
     Dates: start: 20200205, end: 20200518
  5. VECTIBIX [Suspect]
     Active Substance: PANITUMUMAB
     Indication: COLON CANCER RECURRENT
     Dosage: 440 MILLIGRAM, QD
     Route: 041
     Dates: start: 20200326, end: 20200326
  6. VECTIBIX [Suspect]
     Active Substance: PANITUMUMAB
     Dosage: 440 MILLIGRAM
     Route: 041
     Dates: start: 20200423, end: 20200423
  7. MINOMYCIN [Concomitant]
     Active Substance: MINOCYCLINE HYDROCHLORIDE
     Indication: PROPHYLAXIS
     Dosage: 100 MILLIGRAM, BID
     Route: 048
     Dates: start: 20200326, end: 20200518
  8. CAPECITABINE. [Concomitant]
     Active Substance: CAPECITABINE
     Indication: METASTASES TO LYMPH NODES
     Dosage: 1800 MILLIGRAM, BID
     Route: 048
     Dates: start: 20200423, end: 20200507

REACTIONS (8)
  - Pneumonia [Recovering/Resolving]
  - Colon cancer [Fatal]
  - Abdominal pain [Recovered/Resolved]
  - Eczema [Recovered/Resolved]
  - Dehydration [Fatal]
  - Decreased appetite [Not Recovered/Not Resolved]
  - Haematemesis [Fatal]
  - Inflammatory marker increased [Fatal]

NARRATIVE: CASE EVENT DATE: 20200402
